FAERS Safety Report 7262936-6 (Version None)
Quarter: 2011Q1

REPORT INFORMATION
  Report Type: 
  Country: None (occurrence: None)
  Receive Date: 20110130
  Receipt Date: 20100901
  Transmission Date: 20110831
  Serious: No
  Sender: FDA-Public Use
  Company Number: US-ABBOTT-10P-163-0668106-00

PATIENT
  Age: 58 Year
  Sex: Male

DRUGS (12)
  1. LIRAMCIOLNE [Concomitant]
     Indication: PRODUCT USED FOR UNKNOWN INDICATION
  2. XALATAN [Concomitant]
     Indication: PRODUCT USED FOR UNKNOWN INDICATION
     Dosage: AT NIGHT IN EYES
  3. TIMOLOL [Concomitant]
     Indication: PRODUCT USED FOR UNKNOWN INDICATION
     Dosage: IN EACH EYE IN THE MORNING
  4. XANAX [Concomitant]
     Indication: PRODUCT USED FOR UNKNOWN INDICATION
     Dosage: AT NIGHT
  5. FLOMAX [Concomitant]
     Indication: PROSTATOMEGALY
  6. PEPCID [Concomitant]
     Indication: PRODUCT USED FOR UNKNOWN INDICATION
  7. PROVENTIL [Concomitant]
     Indication: PRODUCT USED FOR UNKNOWN INDICATION
     Dosage: AT NIGHT
  8. CYCLOBENZAPRINE [Concomitant]
     Indication: MYALGIA
  9. HUMIRA [Suspect]
     Indication: PSORIATIC ARTHROPATHY
     Dosage: 80 MG LOADING DOSE
     Dates: start: 20100811
  10. TESTIM [Concomitant]
     Indication: PRODUCT USED FOR UNKNOWN INDICATION
     Dosage: 2 TUBES DAILY
  11. LISINOPRIL [Concomitant]
     Indication: PRODUCT USED FOR UNKNOWN INDICATION
     Dosage: 20/25MG
  12. CLOBETASOL [Concomitant]
     Indication: PRODUCT USED FOR UNKNOWN INDICATION
     Dosage: 0.5 SOLUTION TO SCALP

REACTIONS (3)
  - ILL-DEFINED DISORDER [None]
  - DIZZINESS [None]
  - FLUSHING [None]
